FAERS Safety Report 7794874-4 (Version None)
Quarter: 2011Q4

REPORT INFORMATION
  Report Type: 
  Country: None (occurrence: None)
  Receive Date: 20111004
  Receipt Date: 20110926
  Transmission Date: 20120403
  Serious: Yes (Hospitalization)
  Sender: FDA-Public Use
  Company Number: PHHY2011CO75369

PATIENT
  Age: 83 Year
  Sex: Male

DRUGS (6)
  1. ZOLEDRONOC ACID [Suspect]
     Dosage: 5 MG, UNK (PER YEAR)
     Route: 042
     Dates: start: 20110301
  2. ANTIBIOTICS [Concomitant]
     Dosage: UNK UKN, UNK
  3. CALCIUM CARBONATE [Concomitant]
     Dosage: UNK UKN, UNK
  4. ANALGESICS [Concomitant]
     Dosage: UNK UKN, UNK
  5. ENALAPRIL MALEATE [Concomitant]
     Dosage: UNK UKN, UNK
  6. ACETAMINOPHEN [Concomitant]
     Dosage: UNK UKN, UNK

REACTIONS (2)
  - FALL [None]
  - HIP FRACTURE [None]
